FAERS Safety Report 26002241 (Version 1)
Quarter: 2025Q4

REPORT INFORMATION
  Report Type: Spontaneous
  Country: US (occurrence: US)
  Receive Date: 20251105
  Receipt Date: 20251105
  Transmission Date: 20260117
  Serious: No
  Sender: CELLTRION
  Company Number: US-CELLTRION INC.-2025US026522

PATIENT

DRUGS (2)
  1. ZYMFENTRA [Suspect]
     Active Substance: INFLIXIMAB-DYYB
     Indication: Crohn^s disease
     Dosage: 120 MG/ML EVERY 2 WEEKS (HE ADMINISTERED THE MEDICATION ON 7/15)
     Route: 058
     Dates: start: 20250715
  2. ZYMFENTRA [Suspect]
     Active Substance: INFLIXIMAB-DYYB
     Dosage: 120 MG/ML EVERY 2 WEEKS (ADMINISTERED ANOTHER DOSE ON 7/22)
     Route: 058
     Dates: start: 20250722

REACTIONS (2)
  - Inappropriate schedule of product administration [Unknown]
  - Therapy interrupted [Unknown]
